FAERS Safety Report 4301749-1 (Version None)
Quarter: 2004Q1

REPORT INFORMATION
  Report Type: 
  Country: None (occurrence: None)
  Receive Date: 20040219
  Receipt Date: 20040210
  Transmission Date: 20041129
  Serious: Yes (Hospitalization)
  Sender: FDA-Public Use
  Company Number: US-JNJFOC-20031006487

PATIENT
  Age: 49 Year
  Sex: Female

DRUGS (2)
  1. DURAGESIC [Suspect]
     Indication: PAIN
     Dosage: 225 UG/HR, 1 IN 48 HOUR, TRANSDERMAL;  75 UG/HR, 1 IN 48 HOUR, TRANSDERMAL
     Route: 062
     Dates: start: 20020101, end: 20030101
  2. DURAGESIC [Suspect]
     Indication: PAIN
     Dosage: 225 UG/HR, 1 IN 48 HOUR, TRANSDERMAL;  75 UG/HR, 1 IN 48 HOUR, TRANSDERMAL
     Route: 062
     Dates: start: 20030101

REACTIONS (2)
  - DRUG WITHDRAWAL SYNDROME [None]
  - PAIN EXACERBATED [None]
